FAERS Safety Report 7150398-9 (Version None)
Quarter: 2010Q4

REPORT INFORMATION
  Report Type: 
  Country: None (occurrence: None)
  Receive Date: 20101210
  Receipt Date: 20101126
  Transmission Date: 20110411
  Serious: Yes (Hospitalization, Other)
  Sender: FDA-Public Use
  Company Number: PHHY2009CY42150

PATIENT
  Sex: Male
  Weight: 14 kg

DRUGS (1)
  1. EXJADE [Suspect]
     Indication: THALASSAEMIA
     Dosage: 30 MG/KG/DAY
     Route: 065
     Dates: start: 20090403

REACTIONS (11)
  - ALANINE AMINOTRANSFERASE INCREASED [None]
  - ASPARTATE AMINOTRANSFERASE INCREASED [None]
  - BLOOD BILIRUBIN INCREASED [None]
  - BLOOD LACTATE DEHYDROGENASE INCREASED [None]
  - DECREASED APPETITE [None]
  - EPSTEIN-BARR VIRUS TEST POSITIVE [None]
  - FATIGUE [None]
  - HEPATIC ENZYME INCREASED [None]
  - INFECTIOUS MONONUCLEOSIS [None]
  - NAUSEA [None]
  - SOMNOLENCE [None]
